FAERS Safety Report 6106255-X (Version None)
Quarter: 2009Q1

REPORT INFORMATION
  Report Type: 
  Country: None (occurrence: None)
  Receive Date: 20090304
  Receipt Date: 20090220
  Transmission Date: 20090719
  Serious: Yes (Death)
  Sender: FDA-Public Use
  Company Number: GXKR2009US01983

PATIENT
  Age: 25 Year
  Sex: Female

DRUGS (10)
  1. DEXTROMETHORPHAN (NGX) (DEXTROMETHORPHAN) UNKNOWN [Suspect]
  2. TEMAZEPAM [Suspect]
  3. ZYPREXA [Suspect]
  4. LEXAPRO [Suspect]
  5. AMBIEN [Suspect]
  6. ETHANOL (ETHANOL) [Suspect]
     Dosage: EXCESSIVE AMOUNT, UNKNOWN
  7. NAPROXEN [Concomitant]
  8. RISPERDAL [Concomitant]
  9. LITHIUM (LITHIUM) [Concomitant]
  10. METOCARBAMOL (METOCARBAMOL) [Concomitant]

REACTIONS (6)
  - BRONCHOPNEUMONIA [None]
  - DRUG TOXICITY [None]
  - FALL [None]
  - LOSS OF CONSCIOUSNESS [None]
  - PULMONARY CONGESTION [None]
  - UNRESPONSIVE TO STIMULI [None]
